FAERS Safety Report 9647788 (Version 2)
Quarter: 2014Q1

REPORT INFORMATION
  Report Type: Spontaneous
  Country: US (occurrence: US)
  Receive Date: 20131028
  Receipt Date: 20140117
  Transmission Date: 20141002
  Serious: No
  Sender: FDA-Public Use
  Company Number: US-PFIZER INC-2013303163

PATIENT
  Age: 64 Year
  Sex: Female
  Weight: 83.45 kg

DRUGS (5)
  1. RAPAMUNE [Suspect]
     Indication: HYPERTENSION
     Dosage: 120 MG, 2X/DAY
  2. CHANTIX [Suspect]
     Indication: SMOKING CESSATION THERAPY
     Dosage: UNK
     Dates: start: 201308
  3. CHANTIX [Suspect]
     Dosage: 1 MG, DAILY
     Dates: start: 2013, end: 201309
  4. CRESTOR [Concomitant]
     Indication: BLOOD CHOLESTEROL INCREASED
     Dosage: UNK
  5. PROPRANOLOL [Concomitant]
     Indication: TREMOR
     Dosage: 20 MG, 2X/DAY

REACTIONS (6)
  - Nausea [Recovered/Resolved]
  - Headache [Recovered/Resolved]
  - Dizziness [Recovered/Resolved]
  - Off label use [Unknown]
  - Overdose [Unknown]
  - Malaise [Unknown]
